FAERS Safety Report 7028118-8 (Version None)
Quarter: 2010Q4

REPORT INFORMATION
  Report Type: 
  Country: None (occurrence: None)
  Receive Date: 20101005
  Receipt Date: 20100925
  Transmission Date: 20110411
  Serious: No
  Sender: FDA-Public Use
  Company Number: JP-JNJFOC-20100903225

PATIENT
  Sex: Female
  Weight: 65 kg

DRUGS (2)
  1. DUROTEP MT [Suspect]
     Indication: CANCER PAIN
     Route: 062
  2. LAXOBERON [Concomitant]
     Indication: CONSTIPATION
     Route: 048

REACTIONS (2)
  - APPLICATION SITE BLEEDING [None]
  - WRONG TECHNIQUE IN DRUG USAGE PROCESS [None]
